FAERS Safety Report 14364307 (Version 1)
Quarter: 2018Q1

REPORT INFORMATION
  Report Type: Spontaneous
  Country: GB (occurrence: GB)
  Receive Date: 20180108
  Receipt Date: 20180108
  Transmission Date: 20180509
  Serious: Yes (Hospitalization)
  Sender: FDA-Public Use
  Company Number: GB-MYLANLABS-2018M1000168

PATIENT
  Age: 52 Year
  Sex: Male

DRUGS (3)
  1. CLOZARIL [Suspect]
     Active Substance: CLOZAPINE
     Indication: SCHIZOPHRENIA
     Dosage: UNK
     Route: 048
     Dates: start: 20000616
  2. CLOZARIL [Suspect]
     Active Substance: CLOZAPINE
     Dosage: 625 MG, QD
     Route: 048
     Dates: start: 201712, end: 201712
  3. CLOZARIL [Suspect]
     Active Substance: CLOZAPINE
     Dosage: 625 MG, QD
     Route: 048
     Dates: start: 201712

REACTIONS (2)
  - Intestinal obstruction [Unknown]
  - Drug dose titration not performed [Unknown]

NARRATIVE: CASE EVENT DATE: 201712
